FAERS Safety Report 16715038 (Version 1)
Quarter: 2019Q3

REPORT INFORMATION
  Report Type: Spontaneous
  Country: US (occurrence: US)
  Receive Date: 20190819
  Receipt Date: 20190819
  Transmission Date: 20191005
  Serious: No
  Sender: FDA-Public Use
  Company Number: US-MYLANLABS-2019M1072799

PATIENT
  Sex: Female

DRUGS (2)
  1. FENTANYL TRANSDERMAL SYSTEM [Suspect]
     Active Substance: FENTANYL
     Indication: AUTOIMMUNE DISORDER
     Dosage: ONE PATCH OF EACH STRENGTH UNK, Q3D
     Route: 062
     Dates: start: 2019
  2. FENTANYL TRANSDERMAL SYSTEM [Suspect]
     Active Substance: FENTANYL
     Indication: AUTOIMMUNE DISORDER
     Dosage: ONE PATCH OF EACH STRENGTH UNK, Q3D
     Dates: start: 2019

REACTIONS (3)
  - Dry skin [Not Recovered/Not Resolved]
  - Application site irritation [Not Recovered/Not Resolved]
  - Skin fragility [Not Recovered/Not Resolved]

NARRATIVE: CASE EVENT DATE: 2019
